FAERS Safety Report 19063272 (Version 1)
Quarter: 2021Q1

REPORT INFORMATION
  Report Type: Spontaneous
  Country: CN (occurrence: CN)
  Receive Date: 20210326
  Receipt Date: 20210326
  Transmission Date: 20210420
  Serious: Yes (Hospitalization, Other)
  Sender: FDA-Public Use
  Company Number: CN-009507513-2103CHN005350

PATIENT
  Age: 66 Year
  Sex: Male
  Weight: 56.3 kg

DRUGS (4)
  1. METHYLPREDNISOLONE SODIUM SUCCINATE. [Concomitant]
     Active Substance: METHYLPREDNISOLONE SODIUM SUCCINATE
     Indication: CHRONIC OBSTRUCTIVE PULMONARY DISEASE
     Dosage: 20 MILLIGRAM, QD
     Route: 042
     Dates: start: 20210224, end: 20210226
  2. TIENAM [Suspect]
     Active Substance: CILASTATIN SODIUM\IMIPENEM
     Indication: LOWER RESPIRATORY TRACT INFECTION
     Dosage: 1 GRAM, Q8H
     Route: 041
     Dates: start: 20210219, end: 20210305
  3. METHYLPREDNISOLONE SODIUM SUCCINATE. [Concomitant]
     Active Substance: METHYLPREDNISOLONE SODIUM SUCCINATE
     Indication: LOWER RESPIRATORY TRACT INFECTION
     Dosage: 40 MILLIGRAM, QD
     Route: 042
     Dates: start: 20210219, end: 20210223
  4. TIENAM [Suspect]
     Active Substance: CILASTATIN SODIUM\IMIPENEM
     Indication: CHRONIC OBSTRUCTIVE PULMONARY DISEASE

REACTIONS (2)
  - Pneumonia [Not Recovered/Not Resolved]
  - Pulmonary mucormycosis [Not Recovered/Not Resolved]

NARRATIVE: CASE EVENT DATE: 20210228
